FAERS Safety Report 15565029 (Version 2)
Quarter: 2018Q4

REPORT INFORMATION
  Report Type: Spontaneous
  Country: JP (occurrence: JP)
  Receive Date: 20181030
  Receipt Date: 20181101
  Transmission Date: 20190205
  Serious: Yes (Hospitalization, Other)
  Sender: FDA-Public Use
  Company Number: JP-009507513-1810JPN012980

PATIENT
  Age: 27 Year
  Sex: Female

DRUGS (4)
  1. GLACTIV [Suspect]
     Active Substance: SITAGLIPTIN
     Indication: TYPE 2 DIABETES MELLITUS
     Dosage: UNK
     Route: 048
  2. CANAGLU [Suspect]
     Active Substance: CANAGLIFLOZIN
     Dosage: UNK
     Route: 048
  3. METFORMIN HYDROCHLORIDE. [Concomitant]
     Active Substance: METFORMIN HYDROCHLORIDE
     Dosage: ORAL DRUG UNSPECIFIED FORM
  4. GLICLAZIDE [Concomitant]
     Active Substance: GLICLAZIDE
     Dosage: ORAL DRUG UNSPECIFIED FORM

REACTIONS (2)
  - Polyuria [Recovered/Resolved]
  - Euglycaemic diabetic ketoacidosis [Recovered/Resolved]
